FAERS Safety Report 7653827-7 (Version None)
Quarter: 2011Q3

REPORT INFORMATION
  Report Type: 
  Country: None (occurrence: None)
  Receive Date: 20110803
  Receipt Date: 20110728
  Transmission Date: 20111222
  Serious: Yes (Hospitalization, Other)
  Sender: FDA-Public Use
  Company Number: US-PFIZER INC-2011041919

PATIENT
  Sex: Male
  Weight: 97.506 kg

DRUGS (36)
  1. EFFEXOR XR [Suspect]
     Indication: LOWER LIMB FRACTURE
     Dosage: 150 MG, 2X/DAY
     Route: 048
  2. NORVASC [Suspect]
     Indication: SPINAL FRACTURE
     Dosage: 10 MG, DAILY
     Route: 048
  3. NORVASC [Suspect]
     Indication: LOWER LIMB FRACTURE
  4. NORVASC [Suspect]
     Indication: DEPRESSION
  5. LYRICA [Suspect]
     Indication: DEPRESSION
  6. EFFEXOR XR [Suspect]
     Indication: DEPRESSION
  7. LIPITOR [Suspect]
     Indication: SPINAL FRACTURE
     Dosage: 40 MG, 2X/DAY
  8. PROTONIX [Suspect]
     Indication: HEAD INJURY
     Dosage: 40 MG, 1X/DAY
     Route: 048
  9. PROTONIX [Suspect]
     Indication: ANXIETY
  10. NORVASC [Suspect]
     Indication: HEAD INJURY
     Dosage: 10 MG, 1X/DAY
  11. WARFARIN SODIUM [Suspect]
     Indication: LOWER LIMB FRACTURE
     Dosage: 7.5 MG, 1X/DAY
  12. WARFARIN SODIUM [Suspect]
     Dosage: 5 MG, 1X/DAY
  13. LYRICA [Suspect]
     Indication: HEAD INJURY
     Dosage: 50 MG, 2X/DAY
  14. LYRICA [Suspect]
     Indication: LOWER LIMB FRACTURE
     Dosage: 3 CAPSULES OF 150 MG DAILY
     Route: 048
  15. LYRICA [Suspect]
     Indication: NERVE INJURY
  16. LIPITOR [Suspect]
     Indication: LOWER LIMB FRACTURE
     Dosage: 40 MG, DAILY
     Route: 048
  17. PROTONIX [Suspect]
     Indication: NERVE INJURY
  18. PROTONIX [Suspect]
     Indication: DEPRESSION
  19. NORVASC [Suspect]
     Indication: ANXIETY
  20. TRICOR [Concomitant]
     Indication: BLOOD CHOLESTEROL INCREASED
     Dosage: 145 MG, 1X/DAY
  21. EFFEXOR XR [Suspect]
     Indication: HEAD INJURY
     Dosage: 75 MG, 3X/DAY
     Route: 048
  22. EFFEXOR XR [Suspect]
     Indication: ANXIETY
  23. LIPITOR [Suspect]
     Indication: NERVOUS SYSTEM DISORDER
  24. LIPITOR [Suspect]
     Indication: DEPRESSION
  25. NORVASC [Suspect]
     Indication: NERVOUS SYSTEM DISORDER
  26. WARFARIN SODIUM [Suspect]
     Indication: HEAD INJURY
     Dosage: 11.25 MG, 1X/DAY
  27. LYRICA [Suspect]
     Indication: ANXIETY
  28. LIPITOR [Suspect]
     Indication: HEAD INJURY
     Dosage: 80 MG, 2X/DAY
     Route: 048
  29. LIPITOR [Suspect]
     Indication: ANXIETY
  30. EFFEXOR XR [Suspect]
     Indication: SPINAL FRACTURE
     Dosage: TWO 75 MG CAPSULES TWO TIMES DAILY
  31. WARFARIN SODIUM [Suspect]
     Indication: SPINAL FRACTURE
     Dosage: 10 MG, 1X/DAY
  32. TOPROL-XL [Concomitant]
     Indication: HYPERTENSION
     Dosage: 50 MG, 2X/DAY
  33. LYRICA [Suspect]
     Indication: SPINAL FRACTURE
     Dosage: 100 MG, 3X/DAY
  34. EFFEXOR XR [Suspect]
     Indication: NERVOUS SYSTEM DISORDER
  35. PROTONIX [Suspect]
     Indication: SPINAL FRACTURE
  36. PROTONIX [Suspect]
     Indication: LOWER LIMB FRACTURE

REACTIONS (6)
  - OEDEMA PERIPHERAL [None]
  - RENAL DISORDER [None]
  - GASTROINTESTINAL DISORDER [None]
  - HAEMORRHOIDAL HAEMORRHAGE [None]
  - GAIT DISTURBANCE [None]
  - THROMBOSIS [None]
